FAERS Safety Report 16757111 (Version 1)
Quarter: 2019Q3

REPORT INFORMATION
  Report Type: Spontaneous
  Country: US (occurrence: BR)
  Receive Date: 20190829
  Receipt Date: 20190829
  Transmission Date: 20191005
  Serious: Yes (Other)
  Sender: FDA-Public Use
  Company Number: US-SUNOVION-2019SUN003562

PATIENT
  Sex: Female
  Weight: 67 kg

DRUGS (3)
  1. MIFLASONE [Suspect]
     Active Substance: BECLOMETHASONE DIPROPIONATE
     Dosage: 2 DF, QD (400 MCG, 1 CAP BY THE MORNING AND 1 CAP BY THE NIGHT) (1 YEAR AND 6 MONTHS AGO)
     Route: 055
  2. GLYCOPYRROLATE. [Suspect]
     Active Substance: GLYCOPYRROLATE
     Indication: EMPHYSEMA
     Dosage: 1 DF, QD (1 YEAR AND 6 MONTHS AGO)
     Route: 055
  3. MIFLASONE [Suspect]
     Active Substance: BECLOMETHASONE DIPROPIONATE
     Indication: EMPHYSEMA
     Dosage: 4 DF, QD (200 MCG, 2 CAPSULES IN THE MORNING AND AND 2 CAPSULES AT NIGHT)
     Route: 065

REACTIONS (2)
  - Lung disorder [Unknown]
  - Dyspnoea [Not Recovered/Not Resolved]
